FAERS Safety Report 9481505 (Version 1)
Quarter: 2013Q3

REPORT INFORMATION
  Report Type: Spontaneous
  Country: US (occurrence: US)
  Receive Date: 20130828
  Receipt Date: 20130828
  Transmission Date: 20140515
  Serious: Yes (Other)
  Sender: FDA-Public Use
  Company Number: US-AMGEN-KDL172105

PATIENT
  Age: 73 Year
  Sex: Male

DRUGS (2)
  1. ENBREL [Suspect]
     Indication: PSORIASIS
     Dosage: 50 MG, 2 TIMES/WK
     Route: 058
     Dates: start: 20060110
  2. ENBREL [Suspect]
     Indication: ARTHRITIS

REACTIONS (4)
  - Systemic lupus erythematosus [Not Recovered/Not Resolved]
  - Arthritis [Unknown]
  - Urinary tract pain [Not Recovered/Not Resolved]
  - Condition aggravated [Unknown]
